FAERS Safety Report 8179270-2 (Version None)
Quarter: 2012Q1

REPORT INFORMATION
  Report Type: 
  Country: None (occurrence: None)
  Receive Date: 20120229
  Receipt Date: 20120220
  Transmission Date: 20120608
  Serious: Yes (Life-Threatening, Hospitalization, Other)
  Sender: FDA-Public Use
  Company Number: 2012SP009573

PATIENT
  Age: 52 Year
  Sex: Male

DRUGS (3)
  1. PEG-INTRON [Suspect]
     Indication: HEPATITIS C
     Dosage: ;UNK;UNK
     Dates: start: 20120123, end: 20120124
  2. TELAPREVIR [Suspect]
     Indication: HEPATITIS C
     Dosage: ;UNK;UNK
     Dates: start: 20120123, end: 20120124
  3. RIBAVIRIN [Suspect]
     Indication: HEPATITIS C
     Dosage: ;UNK;UNK
     Dates: start: 20120123, end: 20120124

REACTIONS (5)
  - RECTAL HAEMORRHAGE [None]
  - SKIN LESION [None]
  - VOMITING [None]
  - PYREXIA [None]
  - BLOOD BLISTER [None]
